FAERS Safety Report 16054997 (Version 1)
Quarter: 2019Q1

REPORT INFORMATION
  Report Type: Spontaneous
  Country: US (occurrence: US)
  Receive Date: 20190310
  Receipt Date: 20190310
  Transmission Date: 20190418
  Serious: Yes (Hospitalization)
  Sender: FDA-Public Use
  Company Number: US-TEVA-2019-US-1023288

PATIENT
  Age: 88 Year
  Sex: Male
  Weight: 49 kg

DRUGS (11)
  1. ADOAIR 250 DISKUS 60 DOSES [Concomitant]
     Indication: CHRONIC OBSTRUCTIVE PULMONARY DISEASE
     Dosage: 2 DOSAGE FORMS DAILY;
     Dates: end: 20181001
  2. FLUVASTATIN TABLETS 10 MG [Concomitant]
     Indication: DYSLIPIDAEMIA
     Dosage: 10 MILLIGRAM DAILY;
     Route: 048
     Dates: end: 20181001
  3. TEPRENONE FINE GRANULES 10% [Concomitant]
     Indication: GASTRITIS
     Dosage: 150 MILLIGRAM DAILY;
     Route: 048
     Dates: end: 20181001
  4. CANDESARTAN TABLETS 4 MG [Concomitant]
     Indication: HYPERTENSION
     Route: 048
     Dates: end: 20181001
  5. NICORANDIL TABLETS 5MG [Concomitant]
     Indication: CARDIAC FAILURE
     Dosage: 15 MILLIGRAM DAILY;
     Route: 048
     Dates: end: 20181001
  6. BERIZYM COMBINATION GRANULES [Concomitant]
     Indication: GASTRITIS
     Dosage: 1.98 GRAM DAILY;
     Route: 048
     Dates: end: 20181001
  7. LANSOPRAZOLE-OD TABLETS 15 MG [Concomitant]
     Indication: GASTROOESOPHAGEAL REFLUX DISEASE
     Dosage: 15 MILLIGRAM DAILY;
     Route: 048
     Dates: end: 20181001
  8. MEXILETINE HYDROCHLORIDE. [Suspect]
     Active Substance: MEXILETINE HYDROCHLORIDE
     Indication: VENTRICULAR EXTRASYSTOLES
     Dosage: 135 MILLIGRAM DAILY;
     Route: 048
     Dates: start: 20180823, end: 20180925
  9. AMLODIPINE TABLETS 5 MG SAWAI [Suspect]
     Active Substance: AMLODIPINE BESYLATE
     Indication: HYPERTENSION
     Dosage: 5 MILLIGRAM DAILY;
     Route: 048
     Dates: start: 20180921, end: 20180927
  10. ISOCORONAL R CAPSULES 20 MG [Suspect]
     Active Substance: ISOSORBIDE DINITRATE
     Indication: ANGINA PECTORIS
     Dosage: 40 MILLIGRAM DAILY;
     Route: 048
     Dates: end: 20181001
  11. MAGMITT TABLETS 330 MG [Concomitant]
     Indication: CONSTIPATION
     Route: 048
     Dates: end: 20181001

REACTIONS (1)
  - Stevens-Johnson syndrome [Unknown]

NARRATIVE: CASE EVENT DATE: 20180923
